FAERS Safety Report 5523384-X (Version None)
Quarter: 2007Q4

REPORT INFORMATION
  Report Type: 
  Country: None (occurrence: None)
  Receive Date: 20071121
  Receipt Date: 20071116
  Transmission Date: 20080405
  Serious: Yes (Hospitalization)
  Sender: FDA-Public Use
  Company Number: D0055178A

PATIENT
  Age: 37 Year
  Sex: Female
  Weight: 56 kg

DRUGS (3)
  1. VIANI [Suspect]
     Route: 065
     Dates: start: 20070101
  2. PREDNISOLONE [Concomitant]
     Route: 065
  3. SALBUHEXAL [Concomitant]
     Route: 065

REACTIONS (5)
  - DEPRESSION [None]
  - DYSPNOEA [None]
  - FEAR [None]
  - SUFFOCATION FEELING [None]
  - SUICIDAL IDEATION [None]
